FAERS Safety Report 13564983 (Version 1)
Quarter: 2017Q2

REPORT INFORMATION
  Report Type: Spontaneous
  Country: US (occurrence: US)
  Receive Date: 20170519
  Receipt Date: 20170519
  Transmission Date: 20170830
  Serious: No
  Sender: FDA-Public Use
  Company Number: US-PERRIGO-16US016704

PATIENT
  Sex: Male

DRUGS (2)
  1. MICONAZOLE 3 COMBINATION PACK [Suspect]
     Active Substance: MICONAZOLE NITRATE
     Indication: GENITAL BURNING SENSATION
     Dosage: 1 APPLICATION, SINGLE
     Route: 061
     Dates: start: 20160527, end: 20160527
  2. MICONAZOLE 3 COMBINATION PACK [Suspect]
     Active Substance: MICONAZOLE NITRATE
     Indication: PRURITUS GENITAL

REACTIONS (2)
  - Off label use [Recovered/Resolved]
  - Application site warmth [Unknown]

NARRATIVE: CASE EVENT DATE: 20160527
